FAERS Safety Report 15407784 (Version 2)
Quarter: 2018Q4

REPORT INFORMATION
  Report Type: Spontaneous
  Country: GB (occurrence: GB)
  Receive Date: 20180920
  Receipt Date: 20181019
  Transmission Date: 20190204
  Serious: Yes (Hospitalization, Other)
  Sender: FDA-Public Use
  Company Number: GB-BAYER-2018-175242

PATIENT
  Age: 52 Year
  Sex: Female

DRUGS (6)
  1. BETAFERON [Suspect]
     Active Substance: INTERFERON BETA-1B
     Indication: MULTIPLE SCLEROSIS
     Dosage: 250 ?G, QOD
     Route: 058
     Dates: start: 20080317
  2. BACLOFEN. [Concomitant]
     Active Substance: BACLOFEN
  3. TOLTERODINE L-TARTRATE [Concomitant]
     Active Substance: TOLTERODINE TARTRATE
  4. BISACODYL. [Concomitant]
     Active Substance: BISACODYL
  5. CALCIUM CARBONATE. [Concomitant]
     Active Substance: CALCIUM CARBONATE
  6. FLUOXETINE [Concomitant]
     Active Substance: FLUOXETINE HYDROCHLORIDE

REACTIONS (9)
  - Paraparesis [None]
  - Pain [None]
  - Memory impairment [None]
  - Asthenia [None]
  - Fall [None]
  - Mobility decreased [None]
  - Malaise [None]
  - Tremor [None]
  - Fall [None]

NARRATIVE: CASE EVENT DATE: 2018
